FAERS Safety Report 20081493 (Version 2)
Quarter: 2021Q4

REPORT INFORMATION
  Report Type: Other
  Country: US (occurrence: None)
  Receive Date: 20211117
  Receipt Date: 20211213
  Transmission Date: 20220303
  Serious: Yes (Hospitalization)
  Sender: FDA-Public Use
  Company Number: US-ROCHE-2955309

PATIENT
  Age: 53 Year
  Sex: Male
  Weight: 97.610 kg

DRUGS (9)
  1. OCREVUS [Suspect]
     Active Substance: OCRELIZUMAB
     Indication: Multiple sclerosis
     Dosage: ON 10/JUN/2020, LAST INFUSION OF OCRELIZUMAB WAS ADMINISTERED.?DEC/2021
     Route: 042
     Dates: start: 201710
  2. PAROXETINE [Concomitant]
     Active Substance: PAROXETINE
     Route: 048
  3. MELOXICAM [Concomitant]
     Active Substance: MELOXICAM
     Route: 048
  4. TADALAFIL [Concomitant]
     Active Substance: TADALAFIL
     Route: 048
  5. ACETAMINOPHEN [Concomitant]
     Active Substance: ACETAMINOPHEN
     Dosage: PRIOR TO OCREVUS
     Route: 048
  6. CHOLECALCIFEROL [Concomitant]
     Active Substance: CHOLECALCIFEROL
  7. TYLENOL [Concomitant]
     Active Substance: ACETAMINOPHEN
  8. IBUPROFEN [Concomitant]
     Active Substance: IBUPROFEN
  9. CHOLECALCIFEROL [Concomitant]
     Active Substance: CHOLECALCIFEROL
     Route: 048

REACTIONS (1)
  - COVID-19 pneumonia [Recovered/Resolved]

NARRATIVE: CASE EVENT DATE: 20210801
